FAERS Safety Report 12160685 (Version 1)
Quarter: 2016Q1

REPORT INFORMATION
  Report Type: Spontaneous
  Country: RU (occurrence: RU)
  Receive Date: 20160308
  Receipt Date: 20160308
  Transmission Date: 20160526
  Serious: Yes (Hospitalization, Other)
  Sender: FDA-Public Use
  Company Number: RU-JNJFOC-20160304641

PATIENT
  Age: 45 Year
  Sex: Male

DRUGS (9)
  1. DIGOXIN. [Concomitant]
     Active Substance: DIGOXIN
     Indication: PHLEBITIS
     Route: 048
  2. VEROSPIRON [Concomitant]
     Active Substance: SPIRONOLACTONE
     Indication: CARDIAC FAILURE CHRONIC
     Route: 048
  3. ASPIRIN. [Suspect]
     Active Substance: ASPIRIN
     Indication: PRODUCT USED FOR UNKNOWN INDICATION
     Route: 065
  4. DABIGATRAN [Concomitant]
     Active Substance: DABIGATRAN
     Route: 065
  5. XARELTO [Suspect]
     Active Substance: RIVAROXABAN
     Indication: ATRIAL FIBRILLATION
     Route: 048
  6. XARELTO [Suspect]
     Active Substance: RIVAROXABAN
     Indication: THROMBOSIS PROPHYLAXIS
     Route: 048
  7. METOPROLOL. [Concomitant]
     Active Substance: METOPROLOL
     Indication: ATRIAL FIBRILLATION
     Route: 048
  8. XARELTO [Suspect]
     Active Substance: RIVAROXABAN
     Indication: CEREBROVASCULAR ACCIDENT PROPHYLAXIS
     Route: 048
  9. TORASEMID [Concomitant]
     Active Substance: TORSEMIDE
     Indication: CARDIAC FAILURE CHRONIC
     Route: 048

REACTIONS (10)
  - Renal colic [Unknown]
  - Nephrolithiasis [Unknown]
  - Alanine aminotransferase increased [Unknown]
  - Urinary retention [Unknown]
  - Back pain [Unknown]
  - Coagulopathy [Unknown]
  - Aspartate aminotransferase increased [Unknown]
  - Platelet count decreased [Unknown]
  - Cardiac ventricular thrombosis [Unknown]
  - Ischaemic stroke [Unknown]
